FAERS Safety Report 7701268-6 (Version None)
Quarter: 2011Q3

REPORT INFORMATION
  Report Type: 
  Country: None (occurrence: None)
  Receive Date: 20110822
  Receipt Date: 20110811
  Transmission Date: 20111222
  Serious: Yes (Hospitalization)
  Sender: FDA-Public Use
  Company Number: GB-GLAXOSMITHKLINE-B0740856A

PATIENT
  Sex: Female

DRUGS (11)
  1. CHLORAMBUCIL [Suspect]
     Indication: CHRONIC LYMPHOCYTIC LEUKAEMIA
     Dosage: 16MG MONTHLY
     Route: 048
     Dates: start: 20101105
  2. BECLOMETHASONE DIPROPIONATE [Concomitant]
  3. DOXAZOSIN MESYLATE [Concomitant]
  4. SODIUM BICARBONATE [Concomitant]
  5. COTRIM [Concomitant]
  6. RITUXIMAB [Suspect]
     Indication: CHRONIC LYMPHOCYTIC LEUKAEMIA
     Dosage: 580MG MONTHLY
     Route: 042
     Dates: start: 20101105
  7. OMEPRAZOLE [Concomitant]
  8. ACYCLOVIR [Concomitant]
  9. AMLODIPINE [Concomitant]
  10. ATENOLOL [Concomitant]
  11. ASPIRIN [Concomitant]

REACTIONS (1)
  - ESCHERICHIA URINARY TRACT INFECTION [None]
